FAERS Safety Report 21465037 (Version 1)
Quarter: 2022Q4

REPORT INFORMATION
  Report Type: Spontaneous
  Country: RU (occurrence: None)
  Receive Date: 20221017
  Receipt Date: 20221017
  Transmission Date: 20230112
  Serious: Yes (Hospitalization, Other)
  Sender: FDA-Public Use
  Company Number: RU-ROCHE-3199770

PATIENT
  Age: 73 Year
  Sex: Male

DRUGS (4)
  1. OBINUTUZUMAB [Suspect]
     Active Substance: OBINUTUZUMAB
     Indication: Follicular lymphoma stage IV
     Dosage: G-CHOP THERAPY WAS PERFORMED FOR 6 CYCLES?THEN CONSOLIDATION REGIMEN: OBINUTUZUMAB 1000 MG EVERY 8 W
     Route: 042
     Dates: end: 201905
  2. CYCLOPHOSPHAMIDE\DOXORUBICIN\PREDNISONE\VINCRISTINE [Concomitant]
     Active Substance: CYCLOPHOSPHAMIDE\DOXORUBICIN\PREDNISONE\VINCRISTINE
  3. SPUTNIK V [Concomitant]
     Dates: start: 20210322
  4. SPUTNIK V [Concomitant]
     Dates: start: 20210405

REACTIONS (3)
  - Coronavirus infection [Unknown]
  - Pneumonia [Unknown]
  - Breast hyperplasia [Unknown]
